FAERS Safety Report 21389471 (Version 2)
Quarter: 2022Q4

REPORT INFORMATION
  Report Type: Other
  Country: DE (occurrence: DE)
  Receive Date: 20220929
  Receipt Date: 20221007
  Transmission Date: 20230113
  Serious: No
  Sender: FDA-Public Use
  Company Number: DE-002147023-NVSC2022DE209680

PATIENT
  Age: 78 Year
  Sex: Male

DRUGS (6)
  1. RITUXIMAB [Suspect]
     Active Substance: RITUXIMAB
     Indication: Epstein Barr virus positive mucocutaneous ulcer
     Dosage: 3 CYCLES OF R-CHOP REGIMEN
     Route: 065
  2. RITUXIMAB [Suspect]
     Active Substance: RITUXIMAB
     Dosage: 750 MG/M2, Q3W FOR 8 CYCLES
     Route: 065
  3. PREDNISONE [Concomitant]
     Active Substance: PREDNISONE
     Indication: Epstein Barr virus positive mucocutaneous ulcer
     Dosage: 3 CYCLES OF R-CHOP REGIMEN
  4. VINCRISTINE [Concomitant]
     Active Substance: VINCRISTINE
     Indication: Epstein Barr virus positive mucocutaneous ulcer
     Dosage: 3 CYCLES OF R-CHOP REGIMEN
  5. DOXORUBICIN [Concomitant]
     Active Substance: DOXORUBICIN
     Indication: Epstein Barr virus positive mucocutaneous ulcer
     Dosage: 3 CYCLES OF R-CHOP REGIMEN
  6. CYCLOPHOSPHAMIDE [Concomitant]
     Active Substance: CYCLOPHOSPHAMIDE
     Indication: Epstein Barr virus positive mucocutaneous ulcer
     Dosage: 3 CYCLES OF R-CHOP REGIMEN

REACTIONS (2)
  - Off label use [Unknown]
  - No adverse event [Unknown]
